FAERS Safety Report 4600006-3 (Version None)
Quarter: 2005Q1

REPORT INFORMATION
  Report Type: 
  Country: None (occurrence: None)
  Receive Date: 20050303
  Receipt Date: 20050217
  Transmission Date: 20050727
  Serious: Yes (Other)
  Sender: FDA-Public Use
  Company Number: A-US2005-08914

PATIENT
  Age: 46 Year
  Sex: Male
  Weight: 82.8 kg

DRUGS (8)
  1. TRACLEER [Suspect]
     Indication: PULMONARY HYPERTENSION
     Dosage: ORAL
     Route: 048
  2. DAPSONE [Concomitant]
  3. ACYCLOVIR [Concomitant]
  4. KALETRA [Concomitant]
  5. VIREAD [Concomitant]
  6. EPIVIR [Concomitant]
  7. OXYCODONE HCL [Concomitant]
  8. OXYGEN (OXYGEN) [Concomitant]

REACTIONS (10)
  - BRONCHITIS [None]
  - DRUG TOXICITY [None]
  - HEPATITIS VIRAL [None]
  - LYMPHOMA [None]
  - MITRAL VALVE INCOMPETENCE [None]
  - OBSTRUCTION [None]
  - OXYGEN SATURATION DECREASED [None]
  - PHARYNGOLARYNGEAL PAIN [None]
  - SINUSITIS [None]
  - UPPER RESPIRATORY TRACT INFECTION [None]
